FAERS Safety Report 9022261 (Version 1)
Quarter: 2013Q1

REPORT INFORMATION
  Report Type: Spontaneous
  Country: FR (occurrence: FR)
  Receive Date: 20130118
  Receipt Date: 20130118
  Transmission Date: 20140127
  Serious: Yes (Death)
  Sender: FDA-Public Use
  Company Number: PHHY2013FR004305

PATIENT
  Age: 56 Year
  Sex: Female

DRUGS (3)
  1. COTAREG [Suspect]
     Dosage: 30 DF, UNK
     Route: 048
     Dates: start: 20120518, end: 20120518
  2. ISOPTINE [Suspect]
     Dosage: 45 DF, UNK
     Route: 048
     Dates: start: 20120518, end: 20120518
  3. TAHOR [Suspect]
     Dosage: 30 DF, UNK
     Route: 048
     Dates: start: 20120518, end: 20120518

REACTIONS (3)
  - Bradycardia [Fatal]
  - Lactic acidosis [Fatal]
  - Cardiogenic shock [Fatal]
